FAERS Safety Report 5325225-2 (Version None)
Quarter: 2007Q2

REPORT INFORMATION
  Report Type: 
  Country: None (occurrence: None)
  Receive Date: 20070515
  Receipt Date: 20070503
  Transmission Date: 20071010
  Serious: Yes (Other)
  Sender: FDA-Public Use
  Company Number: US-AVENTIS-200711685US

PATIENT
  Sex: Female
  Weight: 54 kg

DRUGS (4)
  1. LANTUS [Suspect]
     Indication: DIABETES MELLITUS INSULIN-DEPENDENT
     Route: 051
     Dates: start: 20020101, end: 20070101
  2. LANTUS [Suspect]
     Dosage: DOSE: 5-10
     Route: 051
     Dates: start: 20070101
  3. HUMALOG                            /00030501/ [Suspect]
     Indication: DIABETES MELLITUS INSULIN-DEPENDENT
     Dosage: DOSE: UNK
  4. SYNTHROID [Concomitant]
     Dosage: DOSE: UNK

REACTIONS (10)
  - ASTHENIA [None]
  - BLOOD GLUCOSE DECREASED [None]
  - BLOOD GLUCOSE INCREASED [None]
  - COUGH [None]
  - DIABETIC COMA [None]
  - DIARRHOEA [None]
  - GASTROENTERITIS VIRAL [None]
  - ORAL INTAKE REDUCED [None]
  - PNEUMONIA PRIMARY ATYPICAL [None]
  - VOMITING [None]
